FAERS Safety Report 13664318 (Version 2)
Quarter: 2017Q3

REPORT INFORMATION
  Report Type: Report from Study
  Country: US (occurrence: US)
  Receive Date: 20170619
  Receipt Date: 20170809
  Transmission Date: 20171127
  Serious: Yes (Other)
  Sender: FDA-Public Use
  Company Number: US-JNJFOC-20160319645

PATIENT
  Age: 84 Year
  Sex: Female

DRUGS (7)
  1. IMBRUVICA [Suspect]
     Active Substance: IBRUTINIB
     Indication: CHRONIC LYMPHOCYTIC LEUKAEMIA
     Route: 048
     Dates: start: 20160216
  2. IMBRUVICA [Suspect]
     Active Substance: IBRUTINIB
     Indication: CHRONIC LYMPHOCYTIC LEUKAEMIA
     Route: 048
     Dates: start: 20160220
  3. SYNTHROID [Concomitant]
     Active Substance: LEVOTHYROXINE SODIUM
  4. LASIX [Concomitant]
     Active Substance: FUROSEMIDE
  5. ADDERALL [Concomitant]
     Active Substance: AMPHETAMINE ASPARTATE\AMPHETAMINE SULFATE\DEXTROAMPHETAMINE SACCHARATE\DEXTROAMPHETAMINE SULFATE
  6. IRON [Concomitant]
     Active Substance: IRON
  7. ATENOLOL. [Concomitant]
     Active Substance: ATENOLOL

REACTIONS (15)
  - Constipation [Unknown]
  - Diarrhoea [Unknown]
  - Asthenia [Unknown]
  - Oedema peripheral [Unknown]
  - Fatigue [Not Recovered/Not Resolved]
  - Vision blurred [Unknown]
  - Indifference [Not Recovered/Not Resolved]
  - Eyelid margin crusting [Unknown]
  - Lacrimation increased [Unknown]
  - Epistaxis [Recovered/Resolved]
  - Eye discharge [Unknown]
  - Decreased appetite [Not Recovered/Not Resolved]
  - Blood pressure fluctuation [Unknown]
  - Drug dose omission [Not Recovered/Not Resolved]
  - Mood altered [Unknown]

NARRATIVE: CASE EVENT DATE: 2016
